FAERS Safety Report 19451255 (Version 1)
Quarter: 2021Q2

REPORT INFORMATION
  Report Type: Spontaneous
  Country: US (occurrence: US)
  Receive Date: 20210623
  Receipt Date: 20210623
  Transmission Date: 20210717
  Serious: Yes (Hospitalization, Other)
  Sender: FDA-Public Use
  Company Number: US-DRREDDYS-SPO/USA/21/0136672

PATIENT
  Age: 19 Year
  Sex: Female

DRUGS (16)
  1. OLANZAPINE TABLETS [Suspect]
     Active Substance: OLANZAPINE
     Indication: PSYCHOTIC DISORDER
     Dosage: AS NEEDED
  2. OLANZAPINE TABLETS [Suspect]
     Active Substance: OLANZAPINE
     Dosage: EVERY MORNING
  3. OLANZAPINE TABLETS [Suspect]
     Active Substance: OLANZAPINE
     Indication: AGITATION
     Dosage: DECREASED (DAY 11)
  4. QUETIAPINE. [Suspect]
     Active Substance: QUETIAPINE
     Dosage: UNCLEAR DOSAGES
  5. OLANZAPINE TABLETS [Suspect]
     Active Substance: OLANZAPINE
     Dosage: EVERY NIGHT AT BEDTIME
  6. QUETIAPINE. [Suspect]
     Active Substance: QUETIAPINE
     Indication: DRUG WITHDRAWAL SYNDROME
  7. PROPRANOLOL HYDROCHLORIDE. [Concomitant]
     Active Substance: PROPRANOLOL HYDROCHLORIDE
     Indication: SINUS TACHYCARDIA
  8. OLANZAPINE TABLETS [Suspect]
     Active Substance: OLANZAPINE
     Dosage: DECREASED (DAY 10)
  9. OLANZAPINE TABLETS [Suspect]
     Active Substance: OLANZAPINE
     Dosage: ON DAY 4 OF HOSPITALIZATION
  10. LITHIUM. [Concomitant]
     Active Substance: LITHIUM
     Indication: MANIA
     Dosage: INCREASED
  11. DIPHENHYDRAMINE. [Concomitant]
     Active Substance: DIPHENHYDRAMINE
     Indication: PRODUCT USED FOR UNKNOWN INDICATION
     Route: 030
  12. LITHIUM. [Concomitant]
     Active Substance: LITHIUM
     Dosage: INCREASED
  13. LORAZEPAM. [Concomitant]
     Active Substance: LORAZEPAM
     Indication: DRUG WITHDRAWAL SYNDROME
  14. HALOPERIDOL. [Suspect]
     Active Substance: HALOPERIDOL
     Indication: PRODUCT USED FOR UNKNOWN INDICATION
     Dosage: UNCLEAR DOSAGES
  15. HALOPERIDOL. [Suspect]
     Active Substance: HALOPERIDOL
     Dosage: UNCLEAR DOSAGES
     Route: 030
  16. LORAZEPAM. [Concomitant]
     Active Substance: LORAZEPAM

REACTIONS (2)
  - Dysphagia [Recovering/Resolving]
  - Neuroleptic malignant syndrome [Recovering/Resolving]
